FAERS Safety Report 17543132 (Version 1)
Quarter: 2020Q1

REPORT INFORMATION
  Report Type: Spontaneous
  Country: KR (occurrence: KR)
  Receive Date: 20200316
  Receipt Date: 20200316
  Transmission Date: 20200409
  Serious: Yes (Hospitalization, Other)
  Sender: FDA-Public Use
  Company Number: KR-INDOCO-000095

PATIENT
  Age: 60 Year
  Sex: Male

DRUGS (1)
  1. ALLOPURINOL. [Suspect]
     Active Substance: ALLOPURINOL
     Indication: HYPERURICAEMIA

REACTIONS (7)
  - Drug reaction with eosinophilia and systemic symptoms [Not Recovered/Not Resolved]
  - Cytomegalovirus infection [Unknown]
  - Human herpesvirus 8 infection [Unknown]
  - Immune reconstitution inflammatory syndrome [Unknown]
  - Epstein-Barr virus infection [Unknown]
  - Condition aggravated [Unknown]
  - Kaposi^s sarcoma [Unknown]
